FAERS Safety Report 16847788 (Version 1)
Quarter: 2019Q3

REPORT INFORMATION
  Report Type: Other
  Country: US (occurrence: US)
  Receive Date: 20190924
  Receipt Date: 20190924
  Transmission Date: 20191005
  Serious: No
  Sender: FDA-Public Use
  Company Number: US-ACORDA-ACO_159982_2019

PATIENT
  Age: 54 Year
  Sex: Male

DRUGS (1)
  1. INBRIJA [Suspect]
     Active Substance: LEVODOPA
     Indication: PARKINSON^S DISEASE
     Dosage: TWO CAPSULES (84 MILLIGRAMS TOTAL) PRN UP TO 5 TIMES PER DAY
     Dates: start: 20190529

REACTIONS (3)
  - Nasal congestion [Not Recovered/Not Resolved]
  - Hypersensitivity [Unknown]
  - Viral infection [Unknown]

NARRATIVE: CASE EVENT DATE: 20190710
